FAERS Safety Report 4290124-4 (Version None)
Quarter: 2004Q1

REPORT INFORMATION
  Report Type: 
  Country: None (occurrence: None)
  Receive Date: 20040209
  Receipt Date: 20040128
  Transmission Date: 20041129
  Serious: Yes (Other)
  Sender: FDA-Public Use
  Company Number: TR-JNJFOC-20040200110

PATIENT
  Age: 3 Year
  Sex: Male
  Weight: 15 kg

DRUGS (2)
  1. TOPIRAMATE [Suspect]
     Indication: PARTIAL SEIZURES
     Dosage: 4 MG/KG, IN 1 DAY, ORAL; 40 MG/KG, ORAL
     Route: 048
     Dates: start: 20031210, end: 20040110
  2. VALPROATE SODIUM (VALPROATE SODIUM) TABLETS [Suspect]
     Indication: PARTIAL SEIZURES
     Dosage: 35 MG/KG, IN 1 DAY, ORAL
     Route: 048
     Dates: start: 20031210

REACTIONS (3)
  - DRUG INTERACTION [None]
  - ENCEPHALOPATHY [None]
  - STATUS EPILEPTICUS [None]
